FAERS Safety Report 4363665-9 (Version None)
Quarter: 2004Q2

REPORT INFORMATION
  Report Type: 
  Country: None (occurrence: None)
  Receive Date: 20040524
  Receipt Date: 20040524
  Transmission Date: 20050107
  Serious: Yes (Death)
  Sender: FDA-Public Use
  Company Number: None

PATIENT
  Sex: Female
  Weight: 81.9 kg

DRUGS (2)
  1. FLUDARABINE PHOSPHATE [Suspect]
     Indication: B-CELL LYMPHOMA
     Dosage: 33 MG Q DAY INTRAVENOUS
     Route: 042
     Dates: start: 20040422, end: 20040426
  2. RETUXIMAB [Concomitant]

REACTIONS (2)
  - APLASTIC ANAEMIA [None]
  - REFUSAL OF TREATMENT BY PATIENT [None]
